FAERS Safety Report 5028062-1 (Version None)
Quarter: 2006Q2

REPORT INFORMATION
  Report Type: 
  Country: None (occurrence: None)
  Receive Date: 20060616
  Receipt Date: 20060607
  Transmission Date: 20061013
  Serious: Yes (Other)
  Sender: FDA-Public Use
  Company Number: US-JNJFOC-20060402203

PATIENT
  Sex: Female
  Weight: 74.84 kg

DRUGS (1)
  1. REGRANEX [Suspect]
     Indication: SKIN ULCER
     Route: 061
     Dates: start: 20060315, end: 20060330

REACTIONS (4)
  - FEELING HOT [None]
  - OEDEMA PERIPHERAL [None]
  - ULCER HAEMORRHAGE [None]
  - VASCULITIS [None]
